FAERS Safety Report 16319850 (Version 1)
Quarter: 2019Q2

REPORT INFORMATION
  Report Type: Spontaneous
  Country: US (occurrence: US)
  Receive Date: 20190516
  Receipt Date: 20190516
  Transmission Date: 20190711
  Serious: Yes (Hospitalization)
  Sender: FDA-Public Use
  Company Number: US-TEVA-2019-US-1049598

PATIENT
  Age: 63 Year
  Sex: Female

DRUGS (2)
  1. NOREPINEPHRINE. [Suspect]
     Active Substance: NOREPINEPHRINE
     Indication: SEPTIC SHOCK
  2. NOREPINEPHRINE. [Suspect]
     Active Substance: NOREPINEPHRINE
     Indication: SUPPORTIVE CARE
     Dosage: RECEIVED 10 MICROG/KG/MIN (700 MICROG/MIN) INFUSION RATHER THAN 10 MICROG/MIN
     Route: 065

REACTIONS (4)
  - Incorrect dose administered [Unknown]
  - Atrial flutter [Recovered/Resolved]
  - Stress cardiomyopathy [Recovered/Resolved]
  - Accidental overdose [Unknown]
